FAERS Safety Report 9577097 (Version 1)
Quarter: 2013Q4

REPORT INFORMATION
  Report Type: Spontaneous
  Country: US (occurrence: US)
  Receive Date: 20131001
  Receipt Date: 20131001
  Transmission Date: 20140711
  Serious: No
  Sender: FDA-Public Use
  Company Number: US-AMGEN-USASP2013006410

PATIENT
  Age: 81 Year
  Sex: Female

DRUGS (11)
  1. ENBREL [Suspect]
     Indication: RHEUMATOID ARTHRITIS
     Dosage: 50 MG, QWK
     Route: 058
  2. RESTASIS [Concomitant]
     Dosage: 0.05 %, UNK
  3. FLUTICASONE [Concomitant]
     Dosage: 50 MUG, UNK
  4. PREDNISONE [Concomitant]
     Dosage: 1 MG, UNK
  5. LEVOTHYROXINE [Concomitant]
     Dosage: 50 MUG, UNK
  6. PRILOSEC                           /00661201/ [Concomitant]
     Dosage: 10 MG, UNK
  7. FELODIPINE [Concomitant]
     Dosage: 5 MG, UNK
  8. MAGNESIUM [Concomitant]
     Dosage: 200 MG, UNK
  9. FISH OIL [Concomitant]
     Dosage: UNK
  10. MULTIVITAMINS, PLAIN [Concomitant]
     Dosage: UNK
  11. VITAMIN D                          /00107901/ [Concomitant]
     Dosage: 400 UNIT, UNK

REACTIONS (6)
  - Rotator cuff syndrome [Unknown]
  - Diarrhoea [Unknown]
  - Dyspnoea [Unknown]
  - Influenza [Unknown]
  - Sinusitis [Unknown]
  - Injection site bruising [Unknown]
